FAERS Safety Report 19955711 (Version 4)
Quarter: 2021Q4

REPORT INFORMATION
  Report Type: Report from Study
  Country: HU (occurrence: HU)
  Receive Date: 20211014
  Receipt Date: 20211113
  Transmission Date: 20220303
  Serious: Yes (Death, Hospitalization, Other)
  Sender: FDA-Public Use
  Company Number: NVSC2021HU235092

PATIENT
  Age: 60 Year
  Sex: Male

DRUGS (5)
  1. ENTRESTO [Suspect]
     Active Substance: SACUBITRIL\VALSARTAN
     Indication: Cardiac failure
     Dosage: UNK MG
     Route: 065
  2. ENTRESTO [Suspect]
     Active Substance: SACUBITRIL\VALSARTAN
     Indication: Cardiac failure
     Dosage: 50 MG (2X1 TABLET)
     Route: 048
     Dates: start: 20210725
  3. ELIQUIS [Concomitant]
     Active Substance: APIXABAN
     Indication: Coagulopathy
     Route: 065
  4. AMIODARONE [Concomitant]
     Active Substance: AMIODARONE
     Indication: Product used for unknown indication
     Dosage: 200 MG, BID
     Route: 065
     Dates: start: 20210720
  5. METFORMIN [Concomitant]
     Active Substance: METFORMIN HYDROCHLORIDE
     Indication: Product used for unknown indication
     Dosage: 1000 MG, BID
     Route: 065

REACTIONS (19)
  - Urosepsis [Fatal]
  - Pyrexia [Fatal]
  - Mental status changes [Fatal]
  - Respiratory failure [Fatal]
  - Polyneuropathy alcoholic [Unknown]
  - Vascular encephalopathy [Unknown]
  - Cirrhosis alcoholic [Unknown]
  - Hepatic failure [Unknown]
  - Altered state of consciousness [Unknown]
  - Respiration abnormal [Unknown]
  - Diarrhoea [Unknown]
  - Hypotension [Unknown]
  - Atrial fibrillation [Unknown]
  - Renal impairment [Unknown]
  - Enzyme level increased [Unknown]
  - Normocytic anaemia [Unknown]
  - Febrile convulsion [Unknown]
  - Pyuria [Unknown]
  - Therapy non-responder [Unknown]

NARRATIVE: CASE EVENT DATE: 20211002
